FAERS Safety Report 6856479-9 (Version None)
Quarter: 2010Q3

REPORT INFORMATION
  Report Type: 
  Country: None (occurrence: None)
  Receive Date: 20100716
  Receipt Date: 20100716
  Transmission Date: 20110219
  Serious: Yes (Hospitalization)
  Sender: FDA-Public Use
  Company Number: None

PATIENT
  Age: 54 Year
  Sex: Male
  Weight: 82.6 kg

DRUGS (2)
  1. SPIRONOLACTONE [Suspect]
     Indication: ASCITES
     Dosage: 12.5 MG BID PO
     Route: 048
     Dates: start: 20100219, end: 20100307
  2. LISINOPRIL [Suspect]
     Indication: HYPERTENSION
     Dosage: 10 MG EVERY DAY PO
     Route: 048
     Dates: start: 20100216, end: 20100307

REACTIONS (2)
  - HAEMODIALYSIS [None]
  - HYPERKALAEMIA [None]
